FAERS Safety Report 11872863 (Version 7)
Quarter: 2016Q2

REPORT INFORMATION
  Report Type: Spontaneous
  Country: US (occurrence: US)
  Receive Date: 20151228
  Receipt Date: 20160422
  Transmission Date: 20160815
  Serious: Yes (Hospitalization, Other)
  Sender: FDA-Public Use
  Company Number: US-PFIZER INC-2015344194

PATIENT
  Age: 75 Year
  Sex: Male
  Weight: 69.21 kg

DRUGS (21)
  1. VOTRIENT [Suspect]
     Active Substance: PAZOPANIB HYDROCHLORIDE
     Indication: RENAL CANCER METASTATIC
     Dosage: 200 MG, DAILY
     Dates: start: 20160118, end: 20160201
  2. ALPRAZOLAM. [Concomitant]
     Active Substance: ALPRAZOLAM
     Dosage: UNK
  3. RANITIDINE HCL [Concomitant]
     Active Substance: RANITIDINE HYDROCHLORIDE
     Dosage: UNK
  4. ZOFRAN [Concomitant]
     Active Substance: ONDANSETRON HYDROCHLORIDE
     Dosage: UNK
  5. AFINITOR [Suspect]
     Active Substance: EVEROLIMUS
     Indication: URETERIC CANCER METASTATIC
     Dosage: 2.5 MG, DAILY
     Route: 048
     Dates: start: 201509, end: 20160201
  6. LYRICA [Concomitant]
     Active Substance: PREGABALIN
     Dosage: 75 MG, UNK
  7. ONDANSETRON [Concomitant]
     Active Substance: ONDANSETRON
     Dosage: 8 MG, UNK
  8. VITAMIN D3 [Concomitant]
     Active Substance: CHOLECALCIFEROL
     Dosage: 1000 IU, UNK
  9. IBRANCE [Suspect]
     Active Substance: PALBOCICLIB
     Indication: URETERIC CANCER METASTATIC
     Dosage: 75 MG, CYCLIC (1 CAPSULE X 21 DAYS -7DAYS OFF)
     Route: 048
     Dates: start: 201509, end: 20160201
  10. CRESTOR [Concomitant]
     Active Substance: ROSUVASTATIN CALCIUM
     Dosage: 20 MG, UNK
  11. PAZOPANIB [Concomitant]
     Active Substance: PAZOPANIB
     Dosage: 200 MG, UNK
  12. CARAFATE [Concomitant]
     Active Substance: SUCRALFATE
     Dosage: 1 G, UNK
  13. FLUTICASONE [Concomitant]
     Active Substance: FLUTICASONE\FLUTICASONE PROPIONATE
     Dosage: 50 MCG/ACTUATION
  14. ASPIRINE EC [Concomitant]
     Dosage: UNK, LOW STRENGTH
  15. NEXIUM [Concomitant]
     Active Substance: ESOMEPRAZOLE MAGNESIUM
     Indication: GASTROOESOPHAGEAL REFLUX DISEASE
     Dosage: 40 MG, 2X/DAY
  16. ROSUVASTATIN. [Concomitant]
     Active Substance: ROSUVASTATIN
     Dosage: UNK
  17. LYRICA [Concomitant]
     Active Substance: PREGABALIN
     Dosage: 100 UNK, UNK
  18. CITALOPRAM [Concomitant]
     Active Substance: CITALOPRAM HYDROBROMIDE
     Indication: MOOD ALTERED
     Dosage: 20 MG, DAILY
  19. SUCRALFATE. [Concomitant]
     Active Substance: SUCRALFATE
     Dosage: UNK
  20. SENNA-S [Concomitant]
     Active Substance: DOCUSATE SODIUM\SENNOSIDES
     Dosage: DOCUSATE SODIUM 8.6MG, SENNOSIDE A+B 50MG
  21. SERTRALINE [Concomitant]
     Active Substance: SERTRALINE HYDROCHLORIDE
     Dosage: 50 MG, UNK

REACTIONS (19)
  - Pneumonia [Recovering/Resolving]
  - Blood count abnormal [Unknown]
  - Cough [Unknown]
  - Ageusia [Unknown]
  - Product use issue [Recovered/Resolved]
  - Platelet count decreased [Recovered/Resolved]
  - Neutropenia [Unknown]
  - Weight decreased [Unknown]
  - Haemoglobin decreased [Not Recovered/Not Resolved]
  - Urinary tract infection [Recovering/Resolving]
  - Fatigue [Not Recovered/Not Resolved]
  - Constipation [Unknown]
  - Anxiety [Unknown]
  - Leukopenia [Recovered/Resolved]
  - Pancytopenia [Unknown]
  - Disease progression [Unknown]
  - Back pain [Unknown]
  - Asthenia [Recovering/Resolving]
  - Ureteric cancer metastatic [Unknown]

NARRATIVE: CASE EVENT DATE: 201509
